FAERS Safety Report 9815280 (Version 10)
Quarter: 2016Q2

REPORT INFORMATION
  Report Type: Report from Study
  Country: PL (occurrence: PL)
  Receive Date: 20140114
  Receipt Date: 20160404
  Transmission Date: 20160815
  Serious: Yes (Hospitalization, Other)
  Sender: FDA-Public Use
  Company Number: PL-AMGEN-POLCT2014001885

PATIENT
  Age: 65 Year
  Sex: Female

DRUGS (33)
  1. ASPIRIN                            /00002701/ [Concomitant]
     Active Substance: ASPIRIN
     Indication: CORONARY ARTERY DISEASE
     Dosage: 75 MG (75 MG,1 IN 1 D)
     Route: 048
     Dates: start: 200305
  2. METHYLPREDNISOLONE. [Concomitant]
     Active Substance: METHYLPREDNISOLONE
     Indication: RHEUMATOID ARTHRITIS
     Dosage: 2 MG, DAILY
     Route: 048
     Dates: start: 201201, end: 20120604
  3. ETANERCEPT [Suspect]
     Active Substance: ETANERCEPT
     Indication: RHEUMATOID ARTHRITIS
     Dosage: 50 MG, WEEKLY (LAST DOSE PRIOR TO ONSET OF EVENT, 28NOV2013)
     Route: 058
     Dates: start: 20120529, end: 20131128
  4. METHOTREXATE [Concomitant]
     Active Substance: METHOTREXATE
     Dosage: 15 MG,1 IN 1 WK
     Route: 048
     Dates: start: 20121101, end: 20121128
  5. MAGNESIUM [Concomitant]
     Active Substance: MAGNESIUM
     Dosage: UNK
  6. MAGNESIUM [Concomitant]
     Active Substance: MAGNESIUM
     Dosage: UNK
  7. FOLIC ACID. [Concomitant]
     Active Substance: FOLIC ACID
     Dosage: 15 MG,1 IN 1 WK
     Route: 048
     Dates: start: 200812
  8. ENOXAPARIN SODIUM. [Concomitant]
     Active Substance: ENOXAPARIN SODIUM
     Dosage: 40 MG, DAILY
     Route: 058
     Dates: start: 20120708, end: 20120807
  9. FAMOTIDINE. [Concomitant]
     Active Substance: FAMOTIDINE
     Indication: DYSPEPSIA
     Dosage: 40 MG, UNK
     Route: 048
     Dates: start: 20130221, end: 20130320
  10. MEBEVERINE HYDROCHLORIDE [Concomitant]
     Active Substance: MEBEVERINE HYDROCHLORIDE
     Indication: DYSPEPSIA
     Dosage: 200 MG, 2X/DAY
     Route: 048
     Dates: start: 20130309, end: 20130330
  11. ZOCOR [Concomitant]
     Active Substance: SIMVASTATIN
     Indication: HYPERLIPIDAEMIA
     Dosage: 20 MG (20 MG,1 IN 1 D)
     Route: 048
     Dates: start: 200305
  12. TELMISARTAN. [Concomitant]
     Active Substance: TELMISARTAN
     Indication: HYPERTENSION
     Dosage: 40 MG (40 MG,1 IN 1 D)
     Route: 048
     Dates: start: 20130709
  13. PANTOPRAZOL [Concomitant]
     Active Substance: PANTOPRAZOLE SODIUM
     Dosage: 20 MG (20 MG,1 IN 1 D)
     Route: 048
     Dates: start: 201002, end: 20130221
  14. TRIMETAZIDINE HYDROCHLORIDE [Concomitant]
     Active Substance: TRIMETAZIDINE DIHYDROCHLORIDE
     Indication: CORONARY ARTERY DISEASE
     Dosage: 35 MG, 2X/DAY
     Route: 048
     Dates: start: 201109, end: 20130708
  15. QUINAPRIL HYDROCHLORIDE. [Concomitant]
     Active Substance: QUINAPRIL HYDROCHLORIDE
     Indication: HYPERTENSION
     Dosage: UNK
     Route: 048
  16. PIROXICAM. [Concomitant]
     Active Substance: PIROXICAM
     Indication: NEURALGIA
     Dosage: 20 MG, DAILY
     Route: 030
     Dates: start: 20130312, end: 20130312
  17. METHOTREXATE [Concomitant]
     Active Substance: METHOTREXATE
     Indication: RHEUMATOID ARTHRITIS
     Dosage: 10 MG,1 IN 1 WK
     Route: 048
     Dates: start: 201202, end: 20121101
  18. CALCIUM [Concomitant]
     Active Substance: CALCIUM
     Dosage: UNK
  19. ACETYLSALICYLIC ACID [Concomitant]
     Active Substance: ASPIRIN
     Indication: CORONARY ARTERY DISEASE
     Dosage: 75 MG (75 MG,1 IN 1 D)
     Route: 048
     Dates: start: 200305
  20. PANTOPRAZOLE [Concomitant]
     Active Substance: PANTOPRAZOLE SODIUM
     Dosage: 40 MG, 1X/DAY
     Route: 048
     Dates: start: 20130222
  21. PANTOPRAZOL [Concomitant]
     Active Substance: PANTOPRAZOLE SODIUM
     Dosage: 40 MG (40 MG,1 IN 1 D)
     Route: 048
     Dates: start: 20130222
  22. LEFLUNOMIDE. [Concomitant]
     Active Substance: LEFLUNOMIDE
     Indication: RHEUMATOID ARTHRITIS
     Dosage: 20 MG, DAILY
     Route: 048
     Dates: start: 201002, end: 20121024
  23. METHYLPREDNISOLONE. [Concomitant]
     Active Substance: METHYLPREDNISOLONE
     Indication: BURSITIS
     Dosage: 40 MG, SINGLE
     Dates: start: 20120919, end: 20120919
  24. NEBIVOLOL. [Concomitant]
     Active Substance: NEBIVOLOL
     Indication: HYPERTENSION
     Dosage: 2.5 MG (2.5 MG,1 IN 1 D)
     Route: 048
     Dates: start: 20130709
  25. CHOLECALCIFEROL [Concomitant]
     Active Substance: CHOLECALCIFEROL
     Indication: OSTEOPOROSIS
     Dosage: 1500 IU (1500 IU,1 IN 1 D)
     Route: 048
     Dates: start: 201201
  26. CHOLECALCIFEROL [Concomitant]
     Active Substance: CHOLECALCIFEROL
     Dosage: 800 IU (800 IU,1 IN 1 D)
     Route: 048
     Dates: start: 201201
  27. DICLOFENAC [Concomitant]
     Active Substance: DICLOFENAC
     Indication: SCIATICA
     Dosage: 75 MG, UNK
     Route: 030
     Dates: start: 20121122, end: 20121201
  28. CALCIUM [Concomitant]
     Active Substance: CALCIUM
     Dosage: UNK
  29. PANTOPRAZOLE [Concomitant]
     Active Substance: PANTOPRAZOLE SODIUM
     Dosage: 20 MG, 1X/DAY
     Route: 048
     Dates: start: 201002, end: 20130221
  30. BETAXOLOL HYDROCHLORIDE. [Concomitant]
     Active Substance: BETAXOLOL HYDROCHLORIDE
     Indication: HYPERTENSION
     Dosage: UNK
     Route: 048
  31. METHOTREXATE [Concomitant]
     Active Substance: METHOTREXATE
     Dosage: 20 MG,1 IN 1 WK
     Route: 048
     Dates: start: 20121128
  32. AZAPENTACENE POLYSULFONATE SODIUM [Concomitant]
  33. SUCRALFATE. [Concomitant]
     Active Substance: SUCRALFATE
     Indication: DYSPEPSIA
     Dosage: 1 G, 4X/DAY
     Route: 048
     Dates: start: 20130221, end: 20130228

REACTIONS (2)
  - Pulmonary mass [Recovered/Resolved]
  - Lung adenocarcinoma [Recovered/Resolved with Sequelae]

NARRATIVE: CASE EVENT DATE: 20131202
